FAERS Safety Report 11276952 (Version 4)
Quarter: 2015Q4

REPORT INFORMATION
  Report Type: Report from Study
  Country: US (occurrence: US)
  Receive Date: 20150716
  Receipt Date: 20151207
  Transmission Date: 20160304
  Serious: Yes (Hospitalization, Other)
  Sender: FDA-Public Use
  Company Number: US-GILEAD-2015-0163310

PATIENT
  Age: 57 Year
  Sex: Female
  Weight: 84.35 kg

DRUGS (4)
  1. REMODULIN [Suspect]
     Active Substance: TREPROSTINIL
     Dosage: 0.041 UG/KG, UNK
     Route: 058
     Dates: start: 20150713
  2. AMBRISENTAN [Suspect]
     Active Substance: AMBRISENTAN
     Indication: PRODUCT USED FOR UNKNOWN INDICATION
     Dosage: 10 MG, QD
     Route: 065
     Dates: start: 20150430
  3. REMODULIN [Suspect]
     Active Substance: TREPROSTINIL
     Indication: PULMONARY HYPERTENSION
     Dosage: 0.041 UG/KG, UNK
     Route: 042
     Dates: start: 20130626
  4. REMODULIN [Suspect]
     Active Substance: TREPROSTINIL
     Dosage: 0.041 UG/KG, UNK
     Route: 058

REACTIONS (5)
  - Pain [Unknown]
  - Device breakage [Unknown]
  - Catheter removal [Unknown]
  - Device dislocation [Unknown]
  - Central venous catheterisation [Unknown]

NARRATIVE: CASE EVENT DATE: 20150711
